FAERS Safety Report 5285808-5 (Version None)
Quarter: 2007Q1

REPORT INFORMATION
  Report Type: 
  Country: None (occurrence: None)
  Receive Date: 20070116
  Receipt Date: 20061016
  Transmission Date: 20070707
  Serious: No
  Sender: FDA-Public Use
  Company Number: 2006SP003684

PATIENT
  Age: 62 Year
  Sex: Male
  Weight: 124.7392 kg

DRUGS (14)
  1. LUNESTA [Suspect]
     Indication: INSOMNIA
     Dosage: 3 MG;HS;ORAL
     Route: 048
     Dates: start: 20060901
  2. METFORMIN HCL [Concomitant]
  3. SOTALOL HYDROCHLORIDE [Concomitant]
  4. FEXOFENADINE [Concomitant]
  5. GLYBURIDE [Concomitant]
  6. ACIPHEX [Concomitant]
  7. PAROXETINE [Concomitant]
  8. COZAAR [Concomitant]
  9. ALLOPURINOL [Concomitant]
  10. TORSEMIDE [Concomitant]
  11. WARFARIN SODIUM [Concomitant]
  12. QUININE [Concomitant]
  13. PRAMIPEXOLE DIHYDROCHLORIDE [Concomitant]
  14. KLONOPIN [Concomitant]

REACTIONS (3)
  - DIZZINESS [None]
  - INITIAL INSOMNIA [None]
  - YAWNING [None]
